FAERS Safety Report 6250718-3 (Version None)
Quarter: 2009Q2

REPORT INFORMATION
  Report Type: 
  Country: None (occurrence: None)
  Receive Date: 20090630
  Receipt Date: 20080811
  Transmission Date: 20091009
  Serious: No
  Sender: FDA-Public Use
  Company Number: US-ABBOTT-08P-163-0469711-00

PATIENT
  Sex: Female
  Weight: 94.432 kg

DRUGS (2)
  1. ZEMPLAR [Suspect]
     Indication: HYPERPARATHYROIDISM
     Route: 048
     Dates: start: 20080410, end: 20080510
  2. ZEMPLAR [Suspect]
     Indication: FATIGUE

REACTIONS (2)
  - FATIGUE [None]
  - HEADACHE [None]
